FAERS Safety Report 19034110 (Version 1)
Quarter: 2021Q1

REPORT INFORMATION
  Report Type: Spontaneous
  Country: JP (occurrence: JP)
  Receive Date: 20210319
  Receipt Date: 20210319
  Transmission Date: 20210420
  Serious: Yes (Death, Other)
  Sender: FDA-Public Use
  Company Number: JP-ASTRAZENECA-2021A151148

PATIENT
  Age: 76 Year
  Sex: Female

DRUGS (1)
  1. LYNPARZA [Suspect]
     Active Substance: OLAPARIB
     Indication: OVARIAN CANCER
     Dosage: DOSE UNKNOWN
     Route: 048

REACTIONS (7)
  - Cerebral haemorrhage [Unknown]
  - Anaemia [Unknown]
  - Bleeding time prolonged [Unknown]
  - Cardiac failure chronic [Unknown]
  - Fracture [Unknown]
  - Fall [Recovered/Resolved]
  - Myelodysplastic syndrome [Fatal]
